FAERS Safety Report 20213554 (Version 1)
Quarter: 2021Q4

REPORT INFORMATION
  Report Type: Spontaneous
  Country: US (occurrence: None)
  Receive Date: 20211221
  Receipt Date: 20211221
  Transmission Date: 20220303
  Serious: Yes (Hospitalization)
  Sender: FDA-Public Use
  Company Number: None

PATIENT
  Age: 73 Year
  Sex: Female

DRUGS (20)
  1. TACROLIMUS [Suspect]
     Active Substance: TACROLIMUS
     Route: 048
     Dates: start: 20200612
  2. AMITRIPTYLIN [Concomitant]
  3. B-COMPLEX-C CAP [Concomitant]
  4. CLONIDINE TAB [Concomitant]
  5. FLAX SEED CAP [Concomitant]
  6. HYDRALAZINE TAB [Concomitant]
  7. HYDRALAZINE TAB [Concomitant]
  8. LASIX [Concomitant]
  9. MULTIPLE VIT TAB [Concomitant]
  10. MYCOPHENOLATE OFETIL [Concomitant]
  11. OMEPRAZOLE [Concomitant]
  12. PREDNISONE [Concomitant]
  13. PRILOSEC CAP [Concomitant]
  14. PROGRAF CAP [Concomitant]
  15. PROLIA SOL [Concomitant]
  16. RAPAMUNE TAB [Concomitant]
  17. SINGULAIR [Concomitant]
  18. ST JOSEPH AS CHW [Concomitant]
  19. SYNTHROID TAB [Concomitant]
  20. THERAPEUTIC TAB [Concomitant]

REACTIONS (1)
  - Infection [None]

NARRATIVE: CASE EVENT DATE: 20211220
